FAERS Safety Report 6309943-5 (Version None)
Quarter: 2009Q3

REPORT INFORMATION
  Report Type: 
  Country: None (occurrence: None)
  Receive Date: 20090814
  Receipt Date: 20090806
  Transmission Date: 20100115
  Serious: Yes (Other)
  Sender: FDA-Public Use
  Company Number: B0587954A

PATIENT
  Sex: Female

DRUGS (2)
  1. LAMICTAL [Suspect]
     Indication: EPILEPSY
     Dosage: 100MG PER DAY
     Route: 048
  2. FOLATE [Concomitant]
     Route: 065
     Dates: start: 20090130

REACTIONS (3)
  - DRUG EXPOSURE DURING PREGNANCY [None]
  - EPILEPSY [None]
  - VACUUM EXTRACTOR DELIVERY [None]
